FAERS Safety Report 4455162-7 (Version None)
Quarter: 2004Q3

REPORT INFORMATION
  Report Type: 
  Country: None (occurrence: None)
  Receive Date: 20040917
  Receipt Date: 20040908
  Transmission Date: 20050211
  Serious: Yes (Death)
  Sender: FDA-Public Use
  Company Number: 2004-09-0488

PATIENT
  Age: 48 Year
  Sex: Male

DRUGS (5)
  1. INTRON A [Suspect]
     Indication: HEPATITIS C
  2. REBETOL [Suspect]
     Indication: HEPATITIS C
  3. PEG-INTRON [Suspect]
     Indication: HEPATITIS C
  4. ELAVIL [Concomitant]
  5. PROZAC [Concomitant]

REACTIONS (2)
  - DRY MOUTH [None]
  - MOUTH HAEMORRHAGE [None]
